FAERS Safety Report 9254844 (Version 2)
Quarter: 2014Q1

REPORT INFORMATION
  Report Type: Spontaneous
  Country: US (occurrence: US)
  Receive Date: 20130425
  Receipt Date: 20140217
  Transmission Date: 20141002
  Serious: Yes (Other)
  Sender: FDA-Public Use
  Company Number: US-AMGEN-USASP2012023582

PATIENT
  Age: 33 Year
  Sex: Female
  Weight: 92.52 kg

DRUGS (4)
  1. ENBREL [Suspect]
     Indication: ANKYLOSING SPONDYLITIS
     Dosage: 50 MG, QWK
     Route: 058
     Dates: start: 2001
  2. ALBUTEROL                          /00139501/ [Concomitant]
     Indication: ASTHMA
     Dosage: UNK, AS NECESSARY
     Route: 048
     Dates: start: 2005
  3. PRENATAL VITAMINS                  /02014401/ [Concomitant]
     Indication: PREGNANCY
     Dosage: UNK UNK, QD
     Route: 048
     Dates: start: 20110901
  4. FLU [Concomitant]
     Dosage: UNK

REACTIONS (2)
  - Gestational diabetes [Unknown]
  - Induced labour [Unknown]
